FAERS Safety Report 7675725-5 (Version None)
Quarter: 2011Q3

REPORT INFORMATION
  Report Type: 
  Country: None (occurrence: None)
  Receive Date: 20110810
  Receipt Date: 20110804
  Transmission Date: 20111222
  Serious: Yes (Life-Threatening, Other)
  Sender: FDA-Public Use
  Company Number: CA-GILEAD-2011-0038629

PATIENT
  Sex: Female
  Weight: 68 kg

DRUGS (8)
  1. VIREAD [Suspect]
     Indication: HIV INFECTION
     Dates: start: 20040119, end: 20040726
  2. ABACAVIR [Concomitant]
     Indication: HIV INFECTION
     Dates: start: 20040119
  3. METOCLOPRAMIDE [Concomitant]
     Indication: NAUSEA
     Dates: start: 20030101
  4. FERROUS SULFATE TAB [Concomitant]
     Indication: IRON DEFICIENCY
     Dates: start: 20030101
  5. LAMIVUDINE [Concomitant]
     Indication: HIV INFECTION
     Dates: start: 20040119
  6. CALCIUM CARBONATE [Concomitant]
     Indication: MEDICAL DIET
     Dates: start: 20030101
  7. TYLENOL W/ CODEINE NO. 3 [Concomitant]
     Indication: PAIN
     Dates: start: 20030101
  8. EFAVIRENZ [Concomitant]
     Indication: HIV INFECTION
     Dates: start: 20040119

REACTIONS (1)
  - FANCONI SYNDROME ACQUIRED [None]
